FAERS Safety Report 5802432-3 (Version None)
Quarter: 2008Q3

REPORT INFORMATION
  Report Type: 
  Country: None (occurrence: None)
  Receive Date: 20080708
  Receipt Date: 20080630
  Transmission Date: 20090109
  Serious: Yes (Death)
  Sender: FDA-Public Use
  Company Number: JP-BAYER-200811421BYL

PATIENT
  Age: 84 Year
  Sex: Female
  Weight: 50 kg

DRUGS (6)
  1. MAGNEVIST [Suspect]
     Indication: ANGIOGRAM
     Dosage: TOTAL DAILY DOSE: 20 ML
     Route: 042
     Dates: start: 20080124, end: 20080124
  2. OMEPRAL [Concomitant]
     Indication: PROPHYLAXIS AGAINST GASTROINTESTINAL ULCER
     Dosage: AS USED: 20 MG
     Route: 042
     Dates: start: 20080124, end: 20080129
  3. LASIX [Concomitant]
     Indication: CARDIAC FAILURE CHRONIC
     Dosage: AS USED: 20 MG
     Route: 042
     Dates: start: 20080124, end: 20080124
  4. MEROPEN [Concomitant]
     Indication: PNEUMONIA
     Dosage: AS USED: 0.5 G
     Route: 042
     Dates: start: 20080124, end: 20080129
  5. FULCALIQ 1 [Concomitant]
     Indication: CARDIAC FAILURE CHRONIC
     Dosage: AS USED: 903 ML
     Route: 042
     Dates: start: 20080119, end: 20080128
  6. NEOPHYLLIN [Concomitant]
     Indication: CARDIAC FAILURE CHRONIC
     Dosage: AS USED: 250 MG
     Route: 042
     Dates: start: 20080124, end: 20080124

REACTIONS (1)
  - RENAL FAILURE [None]
